FAERS Safety Report 4401248-2 (Version None)
Quarter: 2004Q3

REPORT INFORMATION
  Report Type: 
  Country: None (occurrence: None)
  Receive Date: 20040907
  Receipt Date: 20040121
  Transmission Date: 20050211
  Serious: No
  Sender: FDA-Public Use
  Company Number: US-BRISTOL-MYERS SQUIBB COMPANY-12484515

PATIENT
  Sex: Male

DRUGS (8)
  1. COUMADIN [Suspect]
     Indication: ATRIAL FIBRILLATION
     Dosage: STARTED IN 1996.
     Route: 048
     Dates: start: 20030901
  2. PRAVACHOL [Concomitant]
  3. POTASSIUM [Concomitant]
  4. LASIX [Concomitant]
  5. VASOTEC [Concomitant]
  6. ASACOL [Concomitant]
  7. COREG [Concomitant]
  8. MERCAPTOPURINE [Concomitant]
     Dates: start: 20031105

REACTIONS (1)
  - INTERNATIONAL NORMALISED RATIO DECREASED [None]
